FAERS Safety Report 16769860 (Version 1)
Quarter: 2019Q3

REPORT INFORMATION
  Report Type: Spontaneous
  Country: DE (occurrence: DE)
  Receive Date: 20190904
  Receipt Date: 20190904
  Transmission Date: 20191005
  Serious: Yes (Congenital Anomaly, Other)
  Sender: FDA-Public Use
  Company Number: DE-DRREDDYS-GER/GER/12/0025774

PATIENT
  Age: 9 Month
  Sex: Female
  Weight: 2.95 kg

DRUGS (18)
  1. LAMOTRIGINE. [Suspect]
     Active Substance: LAMOTRIGINE
     Indication: PRODUCT USED FOR UNKNOWN INDICATION
     Route: 064
     Dates: start: 20110218, end: 2011
  2. VIMPAT [Suspect]
     Active Substance: LACOSAMIDE
     Dosage: GW 12-13
     Route: 064
     Dates: start: 2011, end: 2011
  3. VIMPAT [Suspect]
     Active Substance: LACOSAMIDE
     Route: 064
     Dates: end: 20111202
  4. VIMPAT [Suspect]
     Active Substance: LACOSAMIDE
     Dosage: DOSE: 50 M, GESTATIONAL WEEK: 14-15
     Route: 064
     Dates: start: 2011, end: 2011
  5. VIMPAT [Suspect]
     Active Substance: LACOSAMIDE
     Indication: PRODUCT USED FOR UNKNOWN INDICATION
     Dosage: GW 10-11
     Route: 064
     Dates: start: 20110218
  6. VIMPAT [Suspect]
     Active Substance: LACOSAMIDE
     Dosage: GW 11-12?TOTAL DAILY DOSE: 200MG, GESTATIONAL WEEK: 11-12
     Route: 064
     Dates: start: 2011, end: 2011
  7. VIMPAT [Suspect]
     Active Substance: LACOSAMIDE
     Dosage: TOTAL DAILY DOSE: 100 MG, GESTATIONAL WEEK: 13-14
     Route: 064
     Dates: start: 2011, end: 2011
  8. ZEBINIX [Concomitant]
     Active Substance: ESLICARBAZEPINE ACETATE
     Dosage: TOTAL DAILY DOSE: 200MG, 0-4.5 GESTATIONAL WEEK
     Route: 062
     Dates: start: 201103, end: 20110323
  9. LAMOTRIGINE. [Suspect]
     Active Substance: LAMOTRIGINE
     Dosage: TOTAL DAILY DOSE: 250 MG, GESTATIONAL WEEK: 10-11?TOTAL DAILY DOSE: 250MG, GESTATIONAL WEEK: 10-12
     Route: 064
     Dates: start: 2011, end: 2011
  10. LAMOTRIGINE. [Suspect]
     Active Substance: LAMOTRIGINE
     Route: 064
     Dates: end: 20111202
  11. LAMOTRIGINE. [Suspect]
     Active Substance: LAMOTRIGINE
     Dosage: TOTAL DAILY DOSE: 300 MG
     Route: 064
     Dates: start: 201103, end: 2011
  12. LAMOTRIGINE. [Suspect]
     Active Substance: LAMOTRIGINE
     Dosage: TOTAL DAILY DOSE: 300MG, GESTATIONAL WEEK: 13-15
     Route: 064
     Dates: start: 2011, end: 2011
  13. FOLIO FORTE [Concomitant]
     Active Substance: FOLIC ACID\VITAMINS
     Indication: PRODUCT USED FOR UNKNOWN INDICATION
     Dosage: 8.3-41 GASTATIONAL WEEK
     Route: 064
     Dates: start: 20110418, end: 20111202
  14. ZEBINIX [Concomitant]
     Active Substance: ESLICARBAZEPINE ACETATE
     Indication: PRODUCT USED FOR UNKNOWN INDICATION
     Route: 064
     Dates: start: 20110218, end: 20110323
  15. LAMOTRIGINE. [Suspect]
     Active Substance: LAMOTRIGINE
     Dosage: TOTAL DAILY DOSE: 275MG, GESTATIONAL WEEK: 12-13
     Route: 064
     Dates: start: 2011, end: 2011
  16. LAMOTRIGINE. [Suspect]
     Active Substance: LAMOTRIGINE
     Dosage: TOTAL DAILY DOSE: 225 MG, GESTATIONAL WEEK: 10-11
     Route: 064
     Dates: start: 2011, end: 2011
  17. LAMOTRIGINE. [Suspect]
     Active Substance: LAMOTRIGINE
     Dosage: 250 [MG/D ]/ GW 10-11: 250MG/D; GW 11-12: 200MG/D; GW 12-13:150MG/D; GW 13-14:100MG/D; GW 14-15: 50M
     Route: 064
     Dates: start: 2011, end: 20111202
  18. VIMPAT [Suspect]
     Active Substance: LACOSAMIDE
     Dosage: TOTAL DAILY DOSE: 250 MG, GESTATIONAL WEEK: 10-11
     Route: 064
     Dates: start: 2011, end: 2011

REACTIONS (4)
  - Atrial septal defect [Recovered/Resolved]
  - Directional Doppler flow tests abnormal [Recovered/Resolved]
  - Small for dates baby [Unknown]
  - Maternal exposure during pregnancy [Recovered/Resolved]

NARRATIVE: CASE EVENT DATE: 201103
